FAERS Safety Report 4894896-7 (Version None)
Quarter: 2006Q1

REPORT INFORMATION
  Report Type: 
  Country: None (occurrence: None)
  Receive Date: 20060130
  Receipt Date: 20050207
  Transmission Date: 20060701
  Serious: No
  Sender: FDA-Public Use
  Company Number: US-BRISTOL-MYERS SQUIBB COMPANY-12851549

PATIENT
  Age: 80 Year
  Sex: Female
  Weight: 77 kg

DRUGS (4)
  1. GLUCOPHAGE [Suspect]
     Indication: GLUCOSE TOLERANCE IMPAIRED
  2. ACTOS [Concomitant]
  3. AMARYL [Concomitant]
  4. CENTRUM [Concomitant]

REACTIONS (3)
  - DYSPEPSIA [None]
  - FLATULENCE [None]
  - NAUSEA [None]
